FAERS Safety Report 20676592 (Version 1)
Quarter: 2022Q2

REPORT INFORMATION
  Report Type: Spontaneous
  Country: US (occurrence: US)
  Receive Date: 20220406
  Receipt Date: 20220406
  Transmission Date: 20220721
  Serious: No
  Sender: FDA-Public Use
  Company Number: US-drreddys-SPO/USA/22/0148196

PATIENT
  Age: 75 Year
  Sex: Female
  Weight: 63.395 kg

DRUGS (3)
  1. IBANDRONATE SODIUM [Suspect]
     Active Substance: IBANDRONATE SODIUM
     Indication: Osteoporosis
     Dates: start: 20220322
  2. SYNTHROID [Concomitant]
     Active Substance: LEVOTHYROXINE SODIUM
     Indication: Product used for unknown indication
  3. GAVISCON [Concomitant]
     Active Substance: ALUMINUM HYDROXIDE\MAGNESIUM CARBONATE
     Indication: Product used for unknown indication

REACTIONS (7)
  - Back pain [Unknown]
  - Dyspepsia [Unknown]
  - Abdominal pain upper [Unknown]
  - Pain in extremity [Unknown]
  - Diarrhoea [Unknown]
  - Headache [Unknown]
  - Myalgia [Unknown]
